FAERS Safety Report 4995397-8 (Version None)
Quarter: 2006Q2

REPORT INFORMATION
  Report Type: 
  Country: None (occurrence: None)
  Receive Date: 20060503
  Receipt Date: 20060417
  Transmission Date: 20061013
  Serious: Yes (Other)
  Sender: FDA-Public Use
  Company Number: IMP_2173_2006

PATIENT
  Age: 40 Year
  Sex: Female
  Weight: 58.9676 kg

DRUGS (2)
  1. CLARITIN [Suspect]
     Indication: EYE DISCHARGE
     Dosage: 1 TAB Q12HR PO
     Route: 048
     Dates: start: 20060321, end: 20060330
  2. CLARITIN [Suspect]
     Indication: RHINORRHOEA
     Dosage: 1 TAB Q12HR PO
     Route: 048
     Dates: start: 20060321, end: 20060330

REACTIONS (3)
  - DRUG HYPERSENSITIVITY [None]
  - NASAL DISCOMFORT [None]
  - RESPIRATORY DISORDER [None]
